FAERS Safety Report 14895952 (Version 1)
Quarter: 2018Q2

REPORT INFORMATION
  Report Type: Spontaneous
  Country: US (occurrence: US)
  Receive Date: 20180515
  Receipt Date: 20180515
  Transmission Date: 20180711
  Serious: Yes (Other)
  Sender: FDA-Public Use
  Company Number: US-AUROBINDO-AUR-APL-2018-024876

PATIENT

DRUGS (4)
  1. IBUPROFEN. [Suspect]
     Active Substance: IBUPROFEN
     Indication: BACK PAIN
     Dosage: 200 MILLIGRAM
     Route: 065
  2. ASPRIN [Suspect]
     Active Substance: ASPIRIN
     Dosage: 650 MILLIGRAM, TWO TIMES A DAY
     Route: 065
  3. ASPRIN [Suspect]
     Active Substance: ASPIRIN
     Dosage: 325 MILLIGRAM, TWO TIMES A DAY
     Route: 065
  4. ASPRIN [Suspect]
     Active Substance: ASPIRIN
     Indication: PRODUCT USED FOR UNKNOWN INDICATION
     Dosage: UNK
     Route: 065

REACTIONS (5)
  - Wheezing [Recovered/Resolved]
  - Rhinorrhoea [Recovered/Resolved]
  - Hyposmia [Recovered/Resolved]
  - Aspirin-exacerbated respiratory disease [Recovered/Resolved]
  - Nasal congestion [Recovered/Resolved]
